FAERS Safety Report 21242081 (Version 5)
Quarter: 2023Q1

REPORT INFORMATION
  Report Type: Spontaneous
  Country: US (occurrence: US)
  Receive Date: 20220823
  Receipt Date: 20230116
  Transmission Date: 20230418
  Serious: Yes (Other)
  Sender: FDA-Public Use
  Company Number: US-PFIZER INC-PV202200047894

PATIENT
  Age: 57 Year
  Sex: Female
  Weight: 63.492 kg

DRUGS (1)
  1. PREMARIN [Suspect]
     Active Substance: ESTROGENS, CONJUGATED
     Indication: Menopause
     Dosage: UNK, DAILY
     Dates: start: 202210

REACTIONS (5)
  - Brain injury [Unknown]
  - Memory impairment [Unknown]
  - Bradyphrenia [Unknown]
  - Confusional state [Unknown]
  - Nervousness [Unknown]
